FAERS Safety Report 6283209-4 (Version None)
Quarter: 2009Q3

REPORT INFORMATION
  Report Type: 
  Country: None (occurrence: None)
  Receive Date: 20090724
  Receipt Date: 20090717
  Transmission Date: 20100115
  Serious: Yes (Hospitalization)
  Sender: FDA-Public Use
  Company Number: JP-ABBOTT-09P-087-0577699-00

PATIENT
  Sex: Male
  Weight: 60 kg

DRUGS (14)
  1. CLARITHROMYCIN [Suspect]
     Indication: UPPER RESPIRATORY TRACT INFLAMMATION
     Route: 048
     Dates: start: 20080105, end: 20080110
  2. BUFFERIN [Concomitant]
     Indication: ARTERIOSCLEROSIS
     Route: 048
  3. TAKEPRON [Concomitant]
     Indication: GASTRIC ULCER
     Route: 048
  4. CEPHADOL [Concomitant]
     Indication: DRUG USE FOR UNKNOWN INDICATION
     Route: 048
  5. AMOXAN [Concomitant]
     Indication: DRUG USE FOR UNKNOWN INDICATION
     Route: 048
  6. LEXOTAN [Concomitant]
     Indication: DRUG USE FOR UNKNOWN INDICATION
     Route: 048
  7. LAC-B [Concomitant]
     Indication: DRUG USE FOR UNKNOWN INDICATION
     Route: 048
  8. GLUFAST [Concomitant]
     Indication: DIABETES MELLITUS
     Route: 048
  9. HARNAL [Concomitant]
     Indication: POLLAKIURIA
     Route: 048
  10. PLETAL [Concomitant]
     Indication: ARTERIOSCLEROSIS
     Route: 048
  11. UBRETID [Concomitant]
     Indication: POLLAKIURIA
     Route: 048
  12. CETILO [Concomitant]
     Indication: CONSTIPATION
  13. FOSMICIN [Concomitant]
     Indication: GASTROENTERITIS
     Route: 048
     Dates: start: 20071227, end: 20071229
  14. UNASYN [Concomitant]
     Indication: BRONCHITIS
     Route: 042
     Dates: start: 20080110, end: 20080115

REACTIONS (1)
  - PSEUDOMEMBRANOUS COLITIS [None]
